FAERS Safety Report 10260879 (Version 1)
Quarter: 2014Q2

REPORT INFORMATION
  Report Type: Spontaneous
  Country: US (occurrence: US)
  Receive Date: 20140626
  Receipt Date: 20140626
  Transmission Date: 20141212
  Serious: Yes (Death, Hospitalization)
  Sender: FDA-Public Use
  Company Number: PHHY2014US077848

PATIENT
  Age: 36 Year
  Sex: Female

DRUGS (4)
  1. CICLOSPORIN [Suspect]
     Indication: EPSTEIN-BARR VIRUS INFECTION
  2. IMMUNOGLOBULIN I.V [Suspect]
     Indication: EPSTEIN-BARR VIRUS INFECTION
  3. VALACYCLOVIR [Suspect]
     Indication: EPSTEIN-BARR VIRUS INFECTION
  4. SOLU MEDROL [Suspect]
     Indication: EPSTEIN-BARR VIRUS INFECTION

REACTIONS (2)
  - Pancytopenia [Fatal]
  - Drug ineffective [Unknown]
